FAERS Safety Report 4752428-8 (Version None)
Quarter: 2005Q3

REPORT INFORMATION
  Report Type: 
  Country: None (occurrence: None)
  Receive Date: 20050823
  Receipt Date: 20050811
  Transmission Date: 20060218
  Serious: Yes (Hospitalization)
  Sender: FDA-Public Use
  Company Number: WAES 01113065

PATIENT
  Age: 52 Year
  Sex: Male

DRUGS (2)
  1. CRIXIVAN [Suspect]
     Indication: HIV INFECTION
     Dosage: 800 MG DAILY PO
     Route: 048
     Dates: start: 19991102, end: 20040707
  2. PENTAMIDINE ISETHIONATE [Concomitant]

REACTIONS (4)
  - GYNAECOMASTIA [None]
  - HYPERLIPIDAEMIA [None]
  - PNEUMOCYSTIS JIROVECI PNEUMONIA [None]
  - PULMONARY TUBERCULOSIS [None]
